FAERS Safety Report 13895486 (Version 1)
Quarter: 2017Q3

REPORT INFORMATION
  Report Type: Spontaneous
  Country: US (occurrence: US)
  Receive Date: 20170823
  Receipt Date: 20170823
  Transmission Date: 20171127
  Serious: Yes (Other)
  Sender: FDA-Public Use
  Company Number: US-PFIZER INC-2017360565

PATIENT
  Age: 60 Year
  Sex: Female

DRUGS (5)
  1. NEURONTIN [Suspect]
     Active Substance: GABAPENTIN
     Indication: NEUROPATHY PERIPHERAL
     Dosage: UNK
     Dates: start: 2010, end: 2010
  2. METOPROLOL. [Concomitant]
     Active Substance: METOPROLOL
     Dosage: 25 MG, 2X/DAY
  3. METFORMIN [Concomitant]
     Active Substance: METFORMIN HYDROCHLORIDE
     Dosage: 500 MG, 2X/DAY
  4. LOSARTAN POTASSIUM. [Concomitant]
     Active Substance: LOSARTAN POTASSIUM
     Dosage: 50 MG, 1X/DAY
  5. GLIMEPIRIDE. [Concomitant]
     Active Substance: GLIMEPIRIDE
     Dosage: 2 MG, 2X/DAY

REACTIONS (2)
  - Drug ineffective for unapproved indication [Unknown]
  - Suicidal ideation [Unknown]

NARRATIVE: CASE EVENT DATE: 2010
